FAERS Safety Report 5724413-0 (Version None)
Quarter: 2008Q2

REPORT INFORMATION
  Report Type: 
  Country: None (occurrence: None)
  Receive Date: 20080430
  Receipt Date: 20080418
  Transmission Date: 20081010
  Serious: Yes (Other)
  Sender: FDA-Public Use
  Company Number: US-PFIZER INC-2008035634

PATIENT
  Sex: Female

DRUGS (3)
  1. LYRICA [Suspect]
     Indication: FIBROMYALGIA
     Route: 048
     Dates: start: 20080101, end: 20080101
  2. HYDROCODONE BITARTRATE + ACETAMINOPHEN [Concomitant]
  3. XANAX [Concomitant]

REACTIONS (1)
  - ABNORMAL BEHAVIOUR [None]
